FAERS Safety Report 6397964-6 (Version None)
Quarter: 2009Q4

REPORT INFORMATION
  Report Type: 
  Country: None (occurrence: None)
  Receive Date: 20091013
  Receipt Date: 20091008
  Transmission Date: 20100525
  Serious: Yes (Other)
  Sender: FDA-Public Use
  Company Number: US-JNJFOC-20090107314

PATIENT
  Age: 15 Year
  Sex: Female

DRUGS (1)
  1. ARESTIN [Suspect]
     Indication: ACNE
     Route: 065

REACTIONS (3)
  - BASEDOW'S DISEASE [None]
  - DRUG RASH WITH EOSINOPHILIA AND SYSTEMIC SYMPTOMS [None]
  - TYPE 1 DIABETES MELLITUS [None]
